FAERS Safety Report 14291621 (Version 1)
Quarter: 2017Q4

REPORT INFORMATION
  Report Type: Spontaneous
  Country: NO (occurrence: NO)
  Receive Date: 20171215
  Receipt Date: 20171215
  Transmission Date: 20180321
  Serious: Yes (Hospitalization)
  Sender: FDA-Public Use
  Company Number: NO-PFIZER INC-2017529974

PATIENT
  Age: 11 Year
  Sex: Male

DRUGS (3)
  1. METHOTREXATE SODIUM. [Suspect]
     Active Substance: METHOTREXATE SODIUM
     Indication: RHEUMATOID ARTHRITIS
     Dosage: UNK
     Dates: start: 201605
  2. LEDERSPAN [Concomitant]
     Active Substance: TRIAMCINOLONE HEXACETONIDE
     Indication: RHEUMATOID ARTHRITIS
     Dosage: UNK
     Dates: start: 201603
  3. BCG VACCINE SSI [Suspect]
     Active Substance: BACILLUS CALMETTE-GUERIN SUBSTRAIN DANISH 1331 LIVE ANTIGEN
     Indication: IMMUNISATION
     Dosage: 1 DF, SINGLE
     Route: 023
     Dates: start: 20030918, end: 20030918

REACTIONS (7)
  - Fistula [Recovering/Resolving]
  - Mycobacterium tuberculosis complex test positive [Unknown]
  - Arthritis [Not Recovered/Not Resolved]
  - Night sweats [Recovered/Resolved]
  - Pyrexia [Recovered/Resolved]
  - General physical health deterioration [Recovering/Resolving]
  - Abscess limb [Recovering/Resolving]

NARRATIVE: CASE EVENT DATE: 2014
